FAERS Safety Report 6150054-X (Version None)
Quarter: 2009Q2

REPORT INFORMATION
  Report Type: 
  Country: None (occurrence: None)
  Receive Date: 20090407
  Receipt Date: 20090407
  Transmission Date: 20091009
  Serious: No
  Sender: FDA-Public Use
  Company Number: None

PATIENT
  Age: 40 Year
  Sex: Male
  Weight: 99.7913 kg

DRUGS (1)
  1. SULFAMETH/TRIMET 800/160 NORTH POINT HEALTH CENTER PHARMACY [Suspect]
     Indication: NASAL DISORDER
     Dosage: 800/ 160 2 TIMES DAILY PO
     Route: 048
     Dates: start: 20090401, end: 20090405

REACTIONS (8)
  - CONVULSION [None]
  - FEELING COLD [None]
  - HALLUCINATION [None]
  - HEADACHE [None]
  - HOT FLUSH [None]
  - MUSCULOSKELETAL STIFFNESS [None]
  - PALPITATIONS [None]
  - VOMITING [None]
